FAERS Safety Report 19494655 (Version 8)
Quarter: 2022Q1

REPORT INFORMATION
  Report Type: Report from Study
  Country: UA (occurrence: UA)
  Receive Date: 20210706
  Receipt Date: 20220218
  Transmission Date: 20220424
  Serious: Yes (Life-Threatening)
  Sender: FDA-Public Use
  Company Number: UA-JNJFOC-20210700076

PATIENT
  Age: 59 Year
  Sex: Male
  Weight: 77 kg

DRUGS (13)
  1. DARATUMUMAB [Suspect]
     Active Substance: DARATUMUMAB
     Indication: Plasma cell myeloma
     Route: 058
     Dates: start: 20210616
  2. FILGRASTIM [Concomitant]
     Active Substance: FILGRASTIM
     Indication: Neutropenia
     Dosage: 48000000 UNITS
     Route: 065
     Dates: start: 20210622, end: 20210622
  3. SULFAMETHOXAZOLE [Concomitant]
     Active Substance: SULFAMETHOXAZOLE
     Indication: Product used for unknown indication
     Route: 065
  4. TRIMETHOPRIM [Concomitant]
     Active Substance: TRIMETHOPRIM
     Indication: Product used for unknown indication
     Route: 065
  5. FLUCONAZOLE [Concomitant]
     Active Substance: FLUCONAZOLE
     Indication: Lymphopenia
     Route: 065
     Dates: start: 20210622, end: 20210624
  6. VALACYCLOVIR HYDROCHLORIDE [Concomitant]
     Active Substance: VALACYCLOVIR HYDROCHLORIDE
     Indication: Lymphopenia
     Route: 065
     Dates: start: 20210622, end: 20210624
  7. DEXAMETHASONE [Concomitant]
     Active Substance: DEXAMETHASONE
     Indication: Product used for unknown indication
     Route: 065
     Dates: start: 20210622, end: 20210624
  8. DEXAMETHASONE [Concomitant]
     Active Substance: DEXAMETHASONE
     Route: 065
     Dates: start: 20210617, end: 20210618
  9. CLEMASTINE [Concomitant]
     Active Substance: CLEMASTINE
     Indication: Product used for unknown indication
     Route: 065
     Dates: start: 20210616, end: 20210616
  10. ETHAMSYLATE [Concomitant]
     Active Substance: ETHAMSYLATE
     Indication: Epistaxis
     Route: 065
     Dates: start: 20210620, end: 20210623
  11. ETHAMSYLATE [Concomitant]
     Active Substance: ETHAMSYLATE
     Route: 065
     Dates: start: 20210624
  12. PANTOPRAZOLE [Concomitant]
     Active Substance: PANTOPRAZOLE
     Indication: Prophylaxis
     Route: 042
     Dates: start: 20210620, end: 20210624
  13. EPOBIOCRIN [Concomitant]
     Indication: Anaemia
     Route: 065
     Dates: start: 20210628

REACTIONS (1)
  - Acute kidney injury [Recovered/Resolved]

NARRATIVE: CASE EVENT DATE: 20210624
